FAERS Safety Report 5265051-6 (Version None)
Quarter: 2007Q1

REPORT INFORMATION
  Report Type: 
  Country: None (occurrence: None)
  Receive Date: 20070314
  Receipt Date: 20070305
  Transmission Date: 20070707
  Serious: Yes (Hospitalization)
  Sender: FDA-Public Use
  Company Number: HQWYE986419JAN07

PATIENT
  Sex: Male

DRUGS (3)
  1. SIROLIMUS [Suspect]
     Indication: PROPHYLAXIS AGAINST TRANSPLANT REJECTION
     Route: 048
     Dates: start: 20051122
  2. LAMIVUDINE [Concomitant]
     Indication: HEPATITIS B VIRUS
     Route: 048
     Dates: start: 19990114
  3. LAMIVUDINE [Concomitant]
     Indication: ANTIVIRAL PROPHYLAXIS

REACTIONS (2)
  - LYMPHADENOPATHY [None]
  - VOCAL CORD POLYP [None]
